FAERS Safety Report 24456312 (Version 2)
Quarter: 2024Q4

REPORT INFORMATION
  Report Type: Report from Study
  Country: CA (occurrence: CA)
  Receive Date: 20241017
  Receipt Date: 20241018
  Transmission Date: 20250114
  Serious: No
  Sender: ROCHE
  Company Number: CA-ROCHE-3496734

PATIENT
  Sex: Male

DRUGS (20)
  1. RITUXAN [Suspect]
     Active Substance: RITUXIMAB
     Indication: End stage renal disease
     Route: 041
     Dates: start: 20200831, end: 20200923
  2. RITUXAN [Suspect]
     Active Substance: RITUXIMAB
     Indication: Vasculitis
     Dosage: SINGLE INFUSIONS
     Route: 041
     Dates: start: 20210622
  3. RITUXAN [Suspect]
     Active Substance: RITUXIMAB
     Route: 041
  4. FUROSEMIDE [Concomitant]
     Active Substance: FUROSEMIDE
  5. HUMALOG [Concomitant]
     Active Substance: INSULIN LISPRO
  6. LANTUS [Concomitant]
     Active Substance: INSULIN GLARGINE
  7. OMEPRAZOLE [Concomitant]
     Active Substance: OMEPRAZOLE
  8. AMLODIPINE BESYLATE [Concomitant]
     Active Substance: AMLODIPINE BESYLATE
  9. BENADRYL [Concomitant]
     Active Substance: DIPHENHYDRAMINE HYDROCHLORIDE
     Route: 048
     Dates: start: 20200831
  10. BILASTINE [Concomitant]
     Active Substance: BILASTINE
  11. CALCIUM [Concomitant]
     Active Substance: CALCIUM
  12. CANDESARTAN CILEXETIL [Concomitant]
     Active Substance: CANDESARTAN CILEXETIL
  13. CHOLECALCIFEROL [Concomitant]
     Active Substance: CHOLECALCIFEROL
  14. EPOETIN ALFA [Concomitant]
     Active Substance: ERYTHROPOIETIN
  15. FLUOCINONIDE [Concomitant]
     Active Substance: FLUOCINONIDE
  16. PREDNISONE [Concomitant]
     Active Substance: PREDNISONE
  17. RISEDRONATE SODIUM [Concomitant]
     Active Substance: RISEDRONATE SODIUM
  18. ROSUVASTATIN CALCIUM [Concomitant]
     Active Substance: ROSUVASTATIN CALCIUM
  19. SULFAMETHOXAZOLE\TRIMETHOPRIM [Concomitant]
     Active Substance: SULFAMETHOXAZOLE\TRIMETHOPRIM
  20. TYLENOL [Concomitant]
     Active Substance: ACETAMINOPHEN
     Route: 048
     Dates: start: 20200831

REACTIONS (1)
  - Lung disorder [Unknown]
